FAERS Safety Report 9297046 (Version 2)
Quarter: 2013Q4

REPORT INFORMATION
  Report Type: Report from Study
  Country: CA (occurrence: CA)
  Receive Date: 20130519
  Receipt Date: 20131205
  Transmission Date: 20140711
  Serious: Yes (Other)
  Sender: FDA-Public Use
  Company Number: CA-ROCHE-1212810

PATIENT
  Age: 30 Year
  Sex: Female
  Weight: 74.8 kg

DRUGS (3)
  1. ACTEMRA [Suspect]
     Indication: RHEUMATOID ARTHRITIS
     Route: 042
     Dates: start: 20121212
  2. PREDNISONE [Concomitant]
  3. ALEVE [Concomitant]
     Route: 065

REACTIONS (2)
  - Abortion spontaneous [Unknown]
  - Pregnancy [Unknown]
